FAERS Safety Report 6613273-1 (Version None)
Quarter: 2010Q1

REPORT INFORMATION
  Report Type: 
  Country: None (occurrence: None)
  Receive Date: 20100304
  Receipt Date: 20100222
  Transmission Date: 20100710
  Serious: Yes (Other)
  Sender: FDA-Public Use
  Company Number: AU-BRISTOL-MYERS SQUIBB COMPANY-14808679

PATIENT
  Age: 44 Year
  Sex: Male

DRUGS (7)
  1. EFAVIRENZ [Suspect]
     Indication: HIV INFECTION
     Route: 065
  2. ATAZANAVIR [Suspect]
     Indication: HIV INFECTION
     Route: 065
  3. INDINAVIR [Suspect]
     Indication: HIV INFECTION
     Route: 065
  4. LAMIVUDINE [Suspect]
     Indication: HIV INFECTION
     Route: 065
  5. ABACAVIR [Suspect]
     Indication: HIV INFECTION
     Route: 065
  6. RITONAVIR [Suspect]
     Indication: HIV INFECTION
     Route: 065
  7. RALTEGRAVIR [Suspect]
     Indication: HIV INFECTION
     Dosage: TABS
     Route: 065

REACTIONS (1)
  - PARKINSONISM [None]
